FAERS Safety Report 5295682-9 (Version None)
Quarter: 2007Q2

REPORT INFORMATION
  Report Type: 
  Country: None (occurrence: None)
  Receive Date: 20070410
  Receipt Date: 20070410
  Transmission Date: 20071010
  Serious: Yes (Hospitalization)
  Sender: FDA-Public Use
  Company Number: None

PATIENT
  Sex: Male
  Weight: 104 kg

DRUGS (10)
  1. GLEEVEC [Suspect]
     Indication: ASTROCYTOMA
     Dosage: 300 MG  QD  PO
     Route: 048
     Dates: start: 20070112
  2. HYDROXYUREA [Suspect]
     Indication: ASTROCYTOMA
     Dosage: 500 MG  BID  PO
     Route: 048
     Dates: start: 20070112
  3. DEXAMETHASONE 0.5MG TAB [Concomitant]
  4. ADDERALL 10 [Concomitant]
  5. LEXAPRO [Concomitant]
  6. NEXIUM [Concomitant]
  7. PROSCAR [Concomitant]
  8. GLAUCOMA EYE DROPS [Concomitant]
  9. HYDROCHLOROTHIAZIDE [Concomitant]
  10. MIV [Concomitant]

REACTIONS (2)
  - GASTROENTERITIS [None]
  - HAEMORRHOIDS [None]
